FAERS Safety Report 18641776 (Version 1)
Quarter: 2020Q4

REPORT INFORMATION
  Report Type: Spontaneous
  Country: DK (occurrence: DK)
  Receive Date: 20201221
  Receipt Date: 20201221
  Transmission Date: 20210114
  Serious: Yes (Life-Threatening, Hospitalization, Disabling)
  Sender: FDA-Public Use
  Company Number: DK-TEVA-2020-DK-1859217

PATIENT
  Age: 73 Year
  Sex: Male

DRUGS (8)
  1. SIMVASTATIN ^TEVA^ [Suspect]
     Active Substance: SIMVASTATIN
     Indication: CARDIOVASCULAR EVENT PROPHYLAXIS
     Dosage: 80 MG
     Route: 048
     Dates: start: 20200915, end: 20201105
  2. GLIMEPIRIDE. [Concomitant]
     Active Substance: GLIMEPIRIDE
     Indication: TYPE 2 DIABETES MELLITUS
     Dosage: 4 MG
     Route: 048
     Dates: start: 20200915, end: 20201105
  3. RYBELSUS [Concomitant]
     Active Substance: SEMAGLUTIDE
     Indication: TYPE 2 DIABETES MELLITUS
     Dosage: 7 MG
     Route: 048
     Dates: start: 20200915, end: 20201015
  4. METFORMIN [Concomitant]
     Active Substance: METFORMIN HYDROCHLORIDE
     Indication: TYPE 2 DIABETES MELLITUS
     Dosage: 2000 MG
     Route: 048
     Dates: start: 20190903, end: 20201105
  5. VITAMIN D [Concomitant]
     Active Substance: VITAMIN D NOS
     Indication: VITAMIN D DEFICIENCY
     Dosage: 35 MICROGRAM
     Route: 048
     Dates: start: 20170309
  6. HJERTEMAGNYL [Concomitant]
     Indication: THROMBOSIS PROPHYLAXIS
     Dosage: 75 MG
     Route: 048
     Dates: start: 20141215
  7. BETOLVEX [Concomitant]
     Indication: VITAMIN B12 DEFICIENCY
     Dosage: 1 MG.
     Route: 048
     Dates: start: 20170703
  8. ASMANEX [Concomitant]
     Active Substance: MOMETASONE FUROATE
     Indication: ASTHMA
     Dosage: 800 MCG ,STRENGTH: 400 MICROGRAM/DOSE
     Route: 055
     Dates: start: 20150408

REACTIONS (2)
  - Muscle discomfort [Unknown]
  - Acute kidney injury [Not Recovered/Not Resolved]

NARRATIVE: CASE EVENT DATE: 202009
